FAERS Safety Report 9934317 (Version 17)
Quarter: 2016Q1

REPORT INFORMATION
  Report Type: Report from Study
  Country: US (occurrence: US)
  Receive Date: 20140228
  Receipt Date: 20160128
  Transmission Date: 20160526
  Serious: Yes (Other)
  Sender: FDA-Public Use
  Company Number: US-SA-2014SA011817

PATIENT
  Age: 61 Year
  Sex: Female
  Weight: 54.43 kg

DRUGS (6)
  1. AUBAGIO [Suspect]
     Active Substance: TERIFLUNOMIDE
     Indication: MULTIPLE SCLEROSIS
     Route: 048
     Dates: start: 20140116, end: 20150130
  2. AUBAGIO [Suspect]
     Active Substance: TERIFLUNOMIDE
     Indication: MULTIPLE SCLEROSIS
     Dosage: THERAPY START DATE TAKEN AS UNKNOWN DUE TO ILLEGIBILITY
     Route: 048
     Dates: start: 2014, end: 20140106
  3. FOSAMAX [Concomitant]
     Active Substance: ALENDRONATE SODIUM
     Dates: start: 2015
  4. VALIUM [Concomitant]
     Active Substance: DIAZEPAM
  5. AUBAGIO [Suspect]
     Active Substance: TERIFLUNOMIDE
     Indication: MULTIPLE SCLEROSIS
     Route: 048
  6. PLAVIX [Concomitant]
     Active Substance: CLOPIDOGREL BISULFATE

REACTIONS (33)
  - Ligament sprain [Unknown]
  - Rhinorrhoea [Recovering/Resolving]
  - Vomiting [Recovering/Resolving]
  - Nausea [Recovering/Resolving]
  - Ear infection [Unknown]
  - Nephrolithiasis [Unknown]
  - Osteonecrosis [Unknown]
  - Vertigo [Recovering/Resolving]
  - Feeling abnormal [Unknown]
  - Dehydration [Recovering/Resolving]
  - Myalgia [Unknown]
  - Dysstasia [Unknown]
  - Upper respiratory tract infection [Recovering/Resolving]
  - Arthralgia [Unknown]
  - Dizziness [Unknown]
  - Anxiety [Unknown]
  - Vertigo [Not Recovered/Not Resolved]
  - Migraine [Recovered/Resolved]
  - Diarrhoea [Unknown]
  - Burning sensation [Unknown]
  - Bipolar disorder [Not Recovered/Not Resolved]
  - Bone disorder [Unknown]
  - Tachyphrenia [Unknown]
  - Abdominal pain [Unknown]
  - Amnesia [Not Recovered/Not Resolved]
  - Fall [Unknown]
  - Gastrointestinal disorder [Unknown]
  - Disturbance in attention [Unknown]
  - Nasopharyngitis [Recovering/Resolving]
  - Cough [Recovering/Resolving]
  - Hypoaesthesia [Unknown]
  - Walking aid user [Unknown]
  - Back pain [Unknown]

NARRATIVE: CASE EVENT DATE: 2014
